FAERS Safety Report 4496441-7 (Version None)
Quarter: 2004Q4

REPORT INFORMATION
  Report Type: 
  Country: None (occurrence: None)
  Receive Date: 20041109
  Receipt Date: 20041103
  Transmission Date: 20050328
  Serious: Yes (Death)
  Sender: FDA-Public Use
  Company Number: US-JNJFOC-20040908273

PATIENT
  Age: 3 Month
  Sex: Female

DRUGS (3)
  1. PSEUDOEPHEDRINE HCL [Suspect]
     Route: 049
  2. ACETAMINOPHEN/PSEUDOEPHEDRINE [Suspect]
     Route: 049
  3. ACETAMINOPHEN/PSEUDOEPHEDRINE [Suspect]
     Indication: TEETHING
     Route: 049

REACTIONS (2)
  - CARDIO-RESPIRATORY ARREST [None]
  - MEDICATION ERROR [None]
